FAERS Safety Report 4367284-X (Version None)
Quarter: 2004Q2

REPORT INFORMATION
  Report Type: 
  Country: None (occurrence: None)
  Receive Date: 20040524
  Receipt Date: 20040510
  Transmission Date: 20050107
  Serious: Yes (Life-Threatening, Hospitalization, Other)
  Sender: FDA-Public Use
  Company Number: HQWYE782710MAY04

PATIENT
  Sex: Female

DRUGS (1)
  1. EFECTIN ER (VENLAFAXINE HYDROCHLORIDE EXTENDED RELEASE) [Suspect]
     Dosage: TWENTY-EIGHT 150  MG CAPSULES (4.2 GM) OVERDOSE ORAL
     Route: 048
     Dates: start: 20030101, end: 20030101

REACTIONS (4)
  - CONVULSION [None]
  - DRUG WITHDRAWAL SYNDROME [None]
  - INTENTIONAL OVERDOSE [None]
  - SUICIDE ATTEMPT [None]
